FAERS Safety Report 14403114 (Version 3)
Quarter: 2018Q1

REPORT INFORMATION
  Report Type: Spontaneous
  Country: US (occurrence: US)
  Receive Date: 20180117
  Receipt Date: 20180216
  Transmission Date: 20180509
  Serious: Yes (Hospitalization, Other)
  Sender: FDA-Public Use
  Company Number: US-SAOL THERAPEUTICS-2018SAO00031

PATIENT
  Age: 32 Year
  Sex: Male
  Weight: 55 kg

DRUGS (7)
  1. BOTOX [Concomitant]
     Active Substance: ONABOTULINUMTOXINA
     Dosage: 50 U IN LEFT UPPER EXTREMITY
     Dates: start: 20171212, end: 20171212
  2. LIORESAL [Suspect]
     Active Substance: BACLOFEN
     Indication: MUSCLE SPASTICITY
     Dosage: 1239.8 ?G, \DAY
     Route: 037
  3. BOTOX [Concomitant]
     Active Substance: ONABOTULINUMTOXINA
     Dosage: 50 U RIGHT FLEXOR CARPI ULNARIS
     Dates: start: 20171212, end: 20171212
  4. BOTOX [Concomitant]
     Active Substance: ONABOTULINUMTOXINA
     Dosage: 150 U IN RIGHT UPPER EXTREMITY
     Dates: start: 20171212, end: 20171212
  5. BOTOX [Concomitant]
     Active Substance: ONABOTULINUMTOXINA
     Dosage: 100 U IN RIGHT BICEPS
     Dates: start: 20171212, end: 20171212
  6. LIORESAL [Suspect]
     Active Substance: BACLOFEN
     Indication: CEREBRAL PALSY
     Dosage: UNK
     Route: 037
     Dates: start: 200408
  7. BOTOX [Concomitant]
     Active Substance: ONABOTULINUMTOXINA
     Dosage: 50 U IN LEFT BICEPS
     Dates: start: 20171212, end: 20171212

REACTIONS (25)
  - Muscle spasms [Not Recovered/Not Resolved]
  - Pruritus [Recovered/Resolved]
  - Hypotonia [Recovered/Resolved]
  - Confusional state [Recovered/Resolved]
  - Constipation [Unknown]
  - Rash [Unknown]
  - Gait disturbance [Unknown]
  - Posturing [Not Recovered/Not Resolved]
  - Therapy non-responder [Recovered/Resolved]
  - Dyskinesia [Recovered/Resolved]
  - Drug withdrawal syndrome [Recovered/Resolved]
  - Decubitus ulcer [Unknown]
  - Anal incontinence [Unknown]
  - Muscle contracture [Not Recovered/Not Resolved]
  - Tachycardia [Recovered/Resolved]
  - Joint hyperextension [Recovered/Resolved]
  - Hypertonia [Unknown]
  - Bursitis [Unknown]
  - Encephalopathy [Unknown]
  - Hallucination, visual [Recovered/Resolved]
  - Overdose [Recovered/Resolved]
  - Incontinence [Unknown]
  - Dysphagia [Unknown]
  - Tremor [Recovered/Resolved]
  - Psoriasis [Unknown]

NARRATIVE: CASE EVENT DATE: 20171212
